FAERS Safety Report 21198675 (Version 16)
Quarter: 2024Q1

REPORT INFORMATION
  Report Type: Spontaneous
  Country: CA (occurrence: CA)
  Receive Date: 20220811
  Receipt Date: 20240323
  Transmission Date: 20240410
  Serious: Yes (Other)
  Sender: FDA-Public Use
  Company Number: CA-CELLTRION INC.-2022CA012769

PATIENT

DRUGS (30)
  1. INFLECTRA [Suspect]
     Active Substance: INFLIXIMAB-DYYB
     Indication: Colitis ulcerative
     Dosage: 900 MG, AT WEEK 2, 6 WEEK THEN EVERY 4 WEEKS
     Route: 042
     Dates: start: 20220713
  2. INFLECTRA [Suspect]
     Active Substance: INFLIXIMAB-DYYB
     Dosage: 1 DF, WEEK 0 HOSPITAL START
     Route: 042
     Dates: start: 20220713, end: 20220713
  3. INFLECTRA [Suspect]
     Active Substance: INFLIXIMAB-DYYB
     Dosage: 900 MG AT 2,6 WEEKS, THEN EVERY 4 WEEKS (MAINTENANCE FREQUENCY EVERY 4 WEEKS )
     Route: 042
     Dates: start: 20220729
  4. INFLECTRA [Suspect]
     Active Substance: INFLIXIMAB-DYYB
     Dosage: 900 MG AT 2,6 WEEKS, THEN EVERY 4 WEEKS (MAINTENANCE FREQUENCY EVERY 4 WEEKS )
     Route: 042
     Dates: start: 20220729, end: 20230818
  5. INFLECTRA [Suspect]
     Active Substance: INFLIXIMAB-DYYB
     Dosage: 900 MG, AT 2,6 WEEKS, THEN EVERY 4 WEEKS (MAINTENANCE FREQUENCY EVERY 4 WEEKS)
     Route: 042
     Dates: start: 20220826
  6. INFLECTRA [Suspect]
     Active Substance: INFLIXIMAB-DYYB
     Dosage: 900 MG, AT 2,6 WEEKS, THEN EVERY 4 WEEKS (MAINTENANCE FREQUENCY EVERY 4 WEEKS)
     Route: 042
     Dates: start: 20220923
  7. INFLECTRA [Suspect]
     Active Substance: INFLIXIMAB-DYYB
     Dosage: 900 MG, AT 2,6 WEEKS, THEN EVERY 4 WEEKS (MAINTENANCE FREQUENCY EVERY 4 WEEKS)
     Route: 042
     Dates: start: 20221021
  8. INFLECTRA [Suspect]
     Active Substance: INFLIXIMAB-DYYB
     Dosage: 900 MG, AT 2,6 WEEKS, THEN EVERY 4 WEEKS (MAINTENANCE FREQUENCY EVERY 4 WEEKS)
     Route: 042
     Dates: start: 20221118
  9. INFLECTRA [Suspect]
     Active Substance: INFLIXIMAB-DYYB
     Dosage: 900 MG, AT 2,6 WEEKS, THEN EVERY 4 WEEKS (MAINTENANCE FREQUENCY EVERY 4 WEEKS)
     Route: 042
     Dates: start: 20221216
  10. INFLECTRA [Suspect]
     Active Substance: INFLIXIMAB-DYYB
     Dosage: 900 MG, AT 2,6 WEEKS, THEN EVERY 4 WEEKS (MAINTENANCE FREQUENCY EVERY 4 WEEKS)
     Route: 042
     Dates: start: 20230113
  11. INFLECTRA [Suspect]
     Active Substance: INFLIXIMAB-DYYB
     Dosage: 900 MG, AT 2,6 WEEKS, THEN EVERY 4 WEEKS (MAINTENANCE FREQUENCY EVERY 4 WEEKS)
     Route: 042
     Dates: start: 20230209
  12. INFLECTRA [Suspect]
     Active Substance: INFLIXIMAB-DYYB
     Dosage: 900 MG, EVERY 4 WEEKS
     Route: 042
     Dates: start: 20230310
  13. INFLECTRA [Suspect]
     Active Substance: INFLIXIMAB-DYYB
     Dosage: 900 MG, EVERY 4 WEEKS
     Route: 042
     Dates: start: 20230328
  14. INFLECTRA [Suspect]
     Active Substance: INFLIXIMAB-DYYB
     Dosage: 800 MG, EVERY 4 WEEKS
     Route: 042
     Dates: start: 20230915
  15. INFLECTRA [Suspect]
     Active Substance: INFLIXIMAB-DYYB
     Dosage: 800 MG, EVERY 4 WEEKS
     Route: 042
     Dates: start: 20231011
  16. BUPROPION [Concomitant]
     Active Substance: BUPROPION
     Dosage: UNK
  17. CALCIUM [Concomitant]
     Active Substance: CALCIUM
     Dosage: UNK
  18. FEROMAX [SACCHARATED IRON OXIDE] [Concomitant]
     Dosage: UNK
  19. MORNIFLUMATE [Concomitant]
     Active Substance: MORNIFLUMATE
     Dosage: UNK
  20. FOLIC ACID [Concomitant]
     Active Substance: FOLIC ACID
     Dosage: UNK
  21. PREDNISONE [Concomitant]
     Active Substance: PREDNISONE
     Dosage: 50MG TO BE TAPERED OFF 5MG DAILY
  22. PREDNISONE [Concomitant]
     Active Substance: PREDNISONE
     Dosage: 40 MG (TITRATING DOWN FROM 40MG -0MG)
  23. PREDNISONE [Concomitant]
     Active Substance: PREDNISONE
     Dosage: 7 MG, 1X/DAY
  24. PREDNISONE [Concomitant]
     Active Substance: PREDNISONE
     Dosage: 5 MG, 1X/DAY (TITRATED)
  25. PREDNISONE [Concomitant]
     Active Substance: PREDNISONE
     Dosage: 3 MG, 1X/DAY
  26. RAMIPRIL [Concomitant]
     Active Substance: RAMIPRIL
     Dosage: UNK
  27. REPATHA [Concomitant]
     Active Substance: EVOLOCUMAB
     Dosage: UNK
  28. VITAMIN D NOS [Concomitant]
     Active Substance: VITAMIN D NOS
     Dosage: UNK
  29. CHOLECALCIFEROL [Concomitant]
     Active Substance: CHOLECALCIFEROL
     Dosage: UNK
  30. XARELTO [Concomitant]
     Active Substance: RIVAROXABAN
     Dosage: UNK

REACTIONS (15)
  - Haematochezia [Not Recovered/Not Resolved]
  - Atrial fibrillation [Not Recovered/Not Resolved]
  - Glaucoma [Unknown]
  - Weight increased [Recovering/Resolving]
  - Vision blurred [Not Recovered/Not Resolved]
  - Hypertension [Not Recovered/Not Resolved]
  - Blood pressure increased [Not Recovered/Not Resolved]
  - Heart rate decreased [Not Recovered/Not Resolved]
  - Condition aggravated [Recovered/Resolved]
  - Vein collapse [Not Recovered/Not Resolved]
  - Poor venous access [Not Recovered/Not Resolved]
  - Thyroid disorder [Not Recovered/Not Resolved]
  - Sedation [Unknown]
  - Off label use [Unknown]
  - Off label use [Unknown]

NARRATIVE: CASE EVENT DATE: 20220701
